FAERS Safety Report 11940199 (Version 1)
Quarter: 2016Q1

REPORT INFORMATION
  Report Type: Spontaneous
  Country: SE (occurrence: SE)
  Receive Date: 20160122
  Receipt Date: 20160122
  Transmission Date: 20160526
  Serious: Yes (Death)
  Sender: FDA-Public Use
  Company Number: SE-TEVA-625566ISR

PATIENT
  Age: 84 Year
  Sex: Male

DRUGS (1)
  1. OLANZAPINE. [Suspect]
     Active Substance: OLANZAPINE
     Route: 048

REACTIONS (10)
  - Sudden death [Fatal]
  - Dysarthria [Fatal]
  - Dyskinesia [Fatal]
  - Impulse-control disorder [Fatal]
  - Fatigue [Fatal]
  - Cyanosis [Fatal]
  - Unresponsive to stimuli [Fatal]
  - Vision blurred [Fatal]
  - Oedema peripheral [Fatal]
  - Depressed level of consciousness [Fatal]
